FAERS Safety Report 10100379 (Version 2)
Quarter: 2014Q2

REPORT INFORMATION
  Report Type: Spontaneous
  Country: US (occurrence: US)
  Receive Date: 20140423
  Receipt Date: 20140521
  Transmission Date: 20141212
  Serious: No
  Sender: FDA-Public Use
  Company Number: US-PFIZER INC-2014109607

PATIENT
  Age: 65 Year
  Sex: Female
  Weight: 51.25 kg

DRUGS (1)
  1. PREMARIN [Suspect]
     Indication: URINARY TRACT INFECTION BACTERIAL
     Dosage: UNK, 3X/WEEK
     Route: 067
     Dates: start: 2014, end: 2014

REACTIONS (6)
  - Hypertension [Unknown]
  - Malaise [Unknown]
  - Breast pain [Unknown]
  - Eye disorder [Unknown]
  - Headache [Unknown]
  - Pain in extremity [Unknown]
